FAERS Safety Report 5856723-0 (Version None)
Quarter: 2008Q3

REPORT INFORMATION
  Report Type: 
  Country: None (occurrence: None)
  Receive Date: 20080825
  Receipt Date: 20080813
  Transmission Date: 20090109
  Serious: Yes (Other)
  Sender: FDA-Public Use
  Company Number: FI-PFIZER INC-2008053914

PATIENT
  Sex: Female
  Weight: 73 kg

DRUGS (6)
  1. CHANTIX [Suspect]
     Indication: SMOKING CESSATION THERAPY
     Route: 048
     Dates: start: 20080201, end: 20080201
  2. ALL OTHER THERAPEUTIC PRODUCTS [Concomitant]
     Indication: DEPRESSION
  3. ALL OTHER THERAPEUTIC PRODUCTS [Concomitant]
     Indication: SLEEP DISORDER
  4. ATACAND HCT [Concomitant]
     Indication: HYPERTENSION
  5. ALL OTHER THERAPEUTIC PRODUCTS [Concomitant]
     Indication: INSOMNIA
  6. PROGYNOVA [Concomitant]
     Indication: MENOPAUSAL SYMPTOMS
     Dosage: DAILY DOSE:2MG

REACTIONS (1)
  - HOMICIDAL IDEATION [None]
